FAERS Safety Report 7648650-3 (Version None)
Quarter: 2011Q3

REPORT INFORMATION
  Report Type: 
  Country: None (occurrence: None)
  Receive Date: 20110801
  Receipt Date: 20110720
  Transmission Date: 20111222
  Serious: Yes (Hospitalization, Other)
  Sender: FDA-Public Use
  Company Number: PHHY2011US65589

PATIENT
  Age: 40 Year
  Sex: Female

DRUGS (2)
  1. TEGRETOL [Suspect]
     Indication: CONVULSION
     Dosage: UNK UKN, UNK
     Route: 048
  2. DILANTIN [Suspect]
     Indication: CONVULSION
     Dosage: 100 MG, FOUR CAPSULE TWO TIMES A DAY
     Route: 048

REACTIONS (6)
  - NASOPHARYNGITIS [None]
  - CONVULSION [None]
  - WRONG TECHNIQUE IN DRUG USAGE PROCESS [None]
  - WEIGHT INCREASED [None]
  - HYPERSOMNIA [None]
  - HYPERPHAGIA [None]
